FAERS Safety Report 6084009-0 (Version None)
Quarter: 2009Q1

REPORT INFORMATION
  Report Type: 
  Country: None (occurrence: None)
  Receive Date: 20090204
  Receipt Date: 20071011
  Transmission Date: 20090719
  Serious: No
  Sender: FDA-Public Use
  Company Number: 268629

PATIENT
  Age: 61 Year
  Sex: Male

DRUGS (1)
  1. NOVOLOG [Suspect]
     Indication: INSULIN-REQUIRING TYPE 2 DIABETES MELLITUS
     Dosage: SLIDING SCALE, SUBCUTANEOUS
     Route: 058
     Dates: start: 20070801

REACTIONS (1)
  - INJECTION SITE HAEMORRHAGE [None]
